FAERS Safety Report 12528679 (Version 1)
Quarter: 2016Q3

REPORT INFORMATION
  Report Type: Spontaneous
  Country: TW (occurrence: TW)
  Receive Date: 20160705
  Receipt Date: 20160705
  Transmission Date: 20161109
  Serious: Yes (Hospitalization)
  Sender: FDA-Public Use
  Company Number: TW-IMPAX LABORATORIES, INC-2016-IPXL-00677

PATIENT
  Age: 85 Year
  Sex: Male

DRUGS (5)
  1. BUPROPION XL [Suspect]
     Active Substance: BUPROPION
     Indication: MAJOR DEPRESSION
     Dosage: 150 MG, DAILY
     Route: 065
  2. DULOXETINE. [Interacting]
     Active Substance: DULOXETINE
     Indication: MAJOR DEPRESSION
     Dosage: 30 MG, DAILY
     Route: 065
  3. BUPROPION XL [Interacting]
     Active Substance: BUPROPION
     Indication: DECREASED ACTIVITY
     Dosage: (UP-TITRATED FROM 150 MG DAILY TO 300 MG DAILY FOR 07 DAYS))
     Route: 065
  4. ESTAZOLAM. [Suspect]
     Active Substance: ESTAZOLAM
     Indication: INSOMNIA
     Dosage: UNK
     Route: 065
  5. DULOXETINE. [Interacting]
     Active Substance: DULOXETINE
     Dosage: (UP-TITRATED FROM 30 MG DAILY TO 60 MG DAILY FOR 10 DAYS)
     Route: 065

REACTIONS (7)
  - Leukocytosis [Recovered/Resolved]
  - Drug interaction [Recovered/Resolved]
  - Delirium [Recovered/Resolved]
  - Hallucination, auditory [Recovered/Resolved]
  - Disorientation [Recovered/Resolved]
  - Hallucination, visual [Recovered/Resolved]
  - Persecutory delusion [Recovered/Resolved]
